FAERS Safety Report 5589640-4 (Version None)
Quarter: 2008Q1

REPORT INFORMATION
  Report Type: 
  Country: None (occurrence: None)
  Receive Date: 20080114
  Receipt Date: 20080103
  Transmission Date: 20080703
  Serious: Yes (Other)
  Sender: FDA-Public Use
  Company Number: B0360858A

PATIENT
  Sex: Male

DRUGS (7)
  1. PAROXETINE HYDROCHLORIDE [Suspect]
     Indication: DEPRESSION
     Route: 048
     Dates: start: 19990120, end: 20021201
  2. PROZAC [Concomitant]
     Dosage: 20MG PER DAY
     Route: 065
     Dates: start: 19940101
  3. TEMAZEPAM [Concomitant]
     Route: 065
     Dates: start: 19940101
  4. DIAZEPAM [Concomitant]
     Route: 065
     Dates: start: 20020405
  5. CITALOPRAM [Concomitant]
     Route: 065
     Dates: start: 20010816
  6. ST JOHNS WORT [Concomitant]
     Route: 065
     Dates: end: 20010101
  7. CIPRAMIL [Concomitant]
     Dates: start: 20011019

REACTIONS (8)
  - AGITATION [None]
  - ANXIETY [None]
  - DEPRESSION [None]
  - DEPRESSIVE SYMPTOM [None]
  - DRUG WITHDRAWAL SYNDROME [None]
  - PALPITATIONS [None]
  - SUICIDAL IDEATION [None]
  - TREMOR [None]
